FAERS Safety Report 8654571 (Version 3)
Quarter: 2012Q4

REPORT INFORMATION
  Report Type: 
  Country: JP (occurrence: JP)
  Receive Date: 20120709
  Receipt Date: 20121231
  Transmission Date: 20130627
  Serious: Yes (Other)
  Sender: FDA-Public Use
  Company Number: JP-MSD-2012SP036401

PATIENT
  Age: 59 Year
  Sex: Female
  Weight: 48 kg

DRUGS (11)
  1. PEGINTRON [Suspect]
     Indication: CHRONIC HEPATITIS C
     Dosage: 1.5 Microgram per kilogram, qw
     Route: 058
     Dates: start: 20120412, end: 20120501
  2. PEGINTRON [Suspect]
     Dosage: 1.4 Microgram per kilogram, qw
     Route: 058
     Dates: start: 20120502, end: 20120605
  3. PEGINTRON [Suspect]
     Dosage: 1.3 Microgram per kilogram, UNK
     Route: 058
     Dates: start: 20120606, end: 20120612
  4. REBETOL [Suspect]
     Indication: CHRONIC HEPATITIS C
     Dosage: 400 mg, QD
     Route: 048
     Dates: start: 20120412, end: 20120417
  5. REBETOL [Suspect]
     Dosage: 600 mg, QD
     Route: 048
     Dates: start: 20120418, end: 20120615
  6. TELAVIC [Suspect]
     Indication: CHRONIC HEPATITIS C
     Dosage: 2250 mg, QD
     Route: 048
     Dates: start: 20120412, end: 20120508
  7. TELAVIC [Suspect]
     Dosage: 1500 mg, QD
     Route: 048
     Dates: start: 20120509, end: 20120603
  8. TELAVIC [Suspect]
     Dosage: 1000 mg, QD
     Route: 048
     Dates: start: 20120604, end: 20120612
  9. TELAVIC [Suspect]
     Dosage: 750 mg, QD
     Route: 048
     Dates: start: 20120613, end: 20120615
  10. FAMOGAST [Concomitant]
     Dosage: 20 mg, QD
     Route: 048
     Dates: start: 20120413
  11. PREDONINE [Concomitant]
     Dosage: 25 mg, UNK
     Route: 048
     Dates: start: 20120611

REACTIONS (2)
  - Skin disorder [Not Recovered/Not Resolved]
  - Rash [Recovering/Resolving]
